FAERS Safety Report 11349475 (Version 1)
Quarter: 2015Q3

REPORT INFORMATION
  Report Type: Spontaneous
  Country: US (occurrence: None)
  Receive Date: 20150805
  Receipt Date: 20150805
  Transmission Date: 20151125
  Serious: Yes (Hospitalization, Other)
  Sender: FDA-Public Use
  Company Number: 2015HINLIT0634

PATIENT
  Age: 60 Year
  Sex: Male

DRUGS (4)
  1. VALPROATE [Suspect]
     Active Substance: VALPROIC ACID
     Indication: BIPOLAR DISORDER
  2. ESCITALOPRAM [Suspect]
     Active Substance: ESCITALOPRAM OXALATE
     Indication: BIPOLAR DISORDER
  3. BUPROPION (BUPROPION) UNKNOWN [Suspect]
     Active Substance: BUPROPION
     Indication: BIPOLAR DISORDER
  4. RISPERIDONE (RISPERIDONE) [Suspect]
     Active Substance: RISPERIDONE
     Indication: BIPOLAR DISORDER

REACTIONS (13)
  - Neuroleptic malignant syndrome [None]
  - Respiratory disorder [None]
  - Dyspnoea [None]
  - Hyperthermia malignant [None]
  - Confusional state [None]
  - Leukocytosis [None]
  - Hypernatraemia [None]
  - Hypocalcaemia [None]
  - Lipase increased [None]
  - Seizure [None]
  - Cough [None]
  - Serotonin syndrome [None]
  - Transaminases increased [None]
